FAERS Safety Report 9642903 (Version 2)
Quarter: 2014Q1

REPORT INFORMATION
  Report Type: Report from Study
  Country: KR (occurrence: KR)
  Receive Date: 20131024
  Receipt Date: 20140124
  Transmission Date: 20141002
  Serious: Yes (Hospitalization)
  Sender: FDA-Public Use
  Company Number: PHHY2013KR119129

PATIENT
  Age: 80 Year
  Sex: Female

DRUGS (2)
  1. GLIVEC [Suspect]
     Indication: CHRONIC MYELOID LEUKAEMIA
     Dosage: 400 MG PER DAY, QD
     Route: 048
     Dates: start: 20061220, end: 201211
  2. GLIVEC [Suspect]
     Dosage: 300 MG PER DAY, QD
     Route: 048
     Dates: start: 20121114

REACTIONS (4)
  - Fall [Unknown]
  - Femur fracture [Recovered/Resolved]
  - Gait disturbance [Recovered/Resolved]
  - Local swelling [Recovered/Resolved]
